FAERS Safety Report 15486478 (Version 3)
Quarter: 2019Q2

REPORT INFORMATION
  Report Type: Spontaneous
  Country: GB (occurrence: GB)
  Receive Date: 20181011
  Receipt Date: 20190507
  Transmission Date: 20190711
  Serious: Yes (Death, Hospitalization)
  Sender: FDA-Public Use
  Company Number: GB-CONCORDIA PHARMACEUTICALS INC.-E2B_00016918

PATIENT
  Age: 85 Year
  Sex: Male
  Weight: 78.1 kg

DRUGS (25)
  1. METOCLOPRAMIDE. [Concomitant]
     Active Substance: METOCLOPRAMIDE
  2. RANITIDINE. [Concomitant]
     Active Substance: RANITIDINE
     Indication: PROPHYLAXIS AGAINST GASTROINTESTINAL ULCER
     Dosage: GASTROPROTECTION
  3. PARACETAMOL [Concomitant]
     Active Substance: ACETAMINOPHEN
  4. CASSIA SENNA [Concomitant]
     Active Substance: HERBALS\SENNOSIDES
  5. SALMETEROL [Concomitant]
     Active Substance: SALMETEROL
  6. FOLIC ACID. [Concomitant]
     Active Substance: FOLIC ACID
  7. MONOFER [Concomitant]
     Active Substance: IRON ISOMALTOSIDE 1000
     Route: 042
     Dates: start: 20180831, end: 20180831
  8. DERMOVATE [Concomitant]
     Active Substance: CLOBETASOL
  9. POTASSIUM PERMANGANATE [Concomitant]
     Active Substance: POTASSIUM PERMANGANATE
     Route: 061
  10. LAXIDO [Concomitant]
     Active Substance: POLYETHYLENE GLYCOL 3350\POTASSIUM CHLORIDE\SODIUM BICARBONATE\SODIUM CHLORIDE
  11. DIGOXIN. [Concomitant]
     Active Substance: DIGOXIN
  12. OXYCODONE [Concomitant]
     Active Substance: OXYCODONE
  13. CYCLIZINE [Concomitant]
     Active Substance: CYCLIZINE
  14. BISOPROLOL [Concomitant]
     Active Substance: BISOPROLOL
  15. ACETYLSALICYLIC ACID [Concomitant]
     Active Substance: ASPIRIN
  16. CALCIUM CARBONATE. [Concomitant]
     Active Substance: CALCIUM CARBONATE
  17. VALACICLOVIR [Concomitant]
     Active Substance: VALACYCLOVIR HYDROCHLORIDE
  18. CLENIL MODULITE [Concomitant]
     Active Substance: BECLOMETHASONE DIPROPIONATE
  19. FUROSEMIDE. [Concomitant]
     Active Substance: FUROSEMIDE
  20. PREDNISOLONE SODIUM PHOSPHATE. [Concomitant]
     Active Substance: PREDNISOLONE SODIUM PHOSPHATE
     Route: 047
  21. SALBUTAMOL [Concomitant]
     Active Substance: ALBUTEROL
  22. PREDNISOLONE. [Suspect]
     Active Substance: PREDNISOLONE
     Indication: CUTANEOUS VASCULITIS
     Route: 048
     Dates: start: 2018, end: 20180920
  23. ONDANSETRON [Concomitant]
     Active Substance: ONDANSETRON
  24. DIHYDROCODEINE [Concomitant]
     Active Substance: DIHYDROCODEINE
  25. ENOXAPARIN [Concomitant]
     Active Substance: ENOXAPARIN

REACTIONS (1)
  - Upper gastrointestinal haemorrhage [Fatal]

NARRATIVE: CASE EVENT DATE: 20180920
